FAERS Safety Report 7768815-X (Version None)
Quarter: 2011Q3

REPORT INFORMATION
  Report Type: 
  Country: None (occurrence: None)
  Receive Date: 20110920
  Receipt Date: 20110829
  Transmission Date: 20111222
  Serious: Yes (Other)
  Sender: FDA-Public Use
  Company Number: 20110623

PATIENT
  Age: 48 Year
  Sex: Female

DRUGS (6)
  1. DIALYSATE, CALCIUM CONCENTRAT [Concomitant]
  2. CALCITRIOL [Concomitant]
  3. CALCIUM CARBONATE [Concomitant]
  4. SODIUM THIOSULFATE [Suspect]
     Indication: CALCIPHYLAXIS
     Dosage: 5.0 G OVER 10 MIN., 4 X/WEEK INTRAVENOUS
     Route: 042
     Dates: start: 20020501, end: 20050101
  5. SEVELAMER [Concomitant]
  6. ALUMINUM CARBONATE [Concomitant]

REACTIONS (3)
  - METABOLIC ACIDOSIS [None]
  - NAUSEA [None]
  - VOMITING [None]
